FAERS Safety Report 9170756 (Version 2)
Quarter: 2013Q2

REPORT INFORMATION
  Report Type: Spontaneous
  Country: US (occurrence: None)
  Receive Date: 20130308
  Receipt Date: 20130402
  Transmission Date: 20140414
  Serious: Yes (Hospitalization)
  Sender: FDA-Public Use
  Company Number: 2012-1438

PATIENT
  Age: 53 Year
  Sex: Male
  Weight: 102.51 kg

DRUGS (14)
  1. KYPROLIS [Suspect]
     Indication: PLASMA CELL MYELOMA
     Dosage: 16.8571 MG (59 MG, 2 IN 1 WK), INTRAVENOUS
     Route: 042
     Dates: start: 20121107
  2. DEXAMETHASONE (DEXAMETHASONE) (DEXAMETHASONE) [Concomitant]
  3. ZOMETA (ZOLEDRONIC ACID) (ZOLEDRONIC ACID) [Concomitant]
  4. METFORMIN (METFORMIN) (METFORMIN) [Concomitant]
  5. LANTUS (INSULIN GLARGINE) (INSULIN GLARGINE) [Concomitant]
  6. GABAPENTIN (GABAPENTIN) (GABAPENTIN) [Concomitant]
  7. OXYCONTIN (OXYCODONE HYDROCHLORIDE) (OXYCODONE HYDROCHLORIDE) [Concomitant]
  8. RESTORIL (TEMAZEPAM) (TEMAZEPAM) [Concomitant]
  9. VITAMIN D (ERGOCALCIFEROL) (ERGOCALCIFEROL) [Concomitant]
  10. VITAMIN E (TOCOPHEROL) (TOCOPHEROL) [Concomitant]
  11. LIPOIC ACID (THIOCTIC ACID) (THIOCTIC ACID) [Concomitant]
  12. LEVEMIR (INSULIN DETEMIR) (INSULIN DETEMIR) [Concomitant]
  13. GLIPIZIDE (GLIPIZIDE) (GLIPIZIDE) [Concomitant]
  14. CLONIDINE (CLONIDINE) (CLONIDINE) [Concomitant]

REACTIONS (22)
  - Fatigue [None]
  - Neuropathy peripheral [None]
  - Condition aggravated [None]
  - Arthralgia [None]
  - Red blood cell count decreased [None]
  - White blood cell count decreased [None]
  - Oropharyngeal pain [None]
  - Cough [None]
  - Rhinorrhoea [None]
  - Tinnitus [None]
  - Chest pain [None]
  - Pain in extremity [None]
  - Headache [None]
  - Fall [None]
  - Back pain [None]
  - Pain [None]
  - Rash [None]
  - Dehydration [None]
  - Diarrhoea [None]
  - Influenza like illness [None]
  - Blood glucose increased [None]
  - Back pain [None]
